FAERS Safety Report 8886817 (Version 2)
Quarter: 2012Q4

REPORT INFORMATION
  Report Type: Report from Study
  Country: JP (occurrence: JP)
  Receive Date: 20121105
  Receipt Date: 20121228
  Transmission Date: 20130627
  Serious: Yes (Hospitalization)
  Sender: FDA-Public Use
  Company Number: JP-EISAI INC-E7389-03183-CLI-JP

PATIENT
  Sex: Female
  Weight: 52 kg

DRUGS (15)
  1. HALAVEN [Suspect]
     Indication: BREAST CANCER RECURRENT
     Route: 041
     Dates: start: 20111019
  2. HALAVEN [Suspect]
     Indication: METASTASES TO LUNG
     Route: 041
     Dates: start: 20111012, end: 20111012
  3. NOLVADEX [Concomitant]
     Indication: BREAST CANCER RECURRENT
     Route: 065
     Dates: end: 20120417
  4. DECADRON [Concomitant]
     Indication: PROPHYLAXIS
     Route: 048
  5. SEROTONE [Concomitant]
     Indication: PROPHYLAXIS
     Route: 048
  6. PARIET [Concomitant]
     Indication: PROPHYLAXIS
     Route: 048
  7. HEAVY MAGNESIUM OXIDE [Concomitant]
     Indication: PROPHYLAXIS
     Route: 048
  8. BIO-THREE [Concomitant]
     Indication: PROPHYLAXIS
     Route: 048
  9. GRANISETRON [Concomitant]
     Indication: PROPHYLAXIS
     Route: 065
  10. LEUCON [Concomitant]
     Indication: PROPHYLAXIS
     Route: 048
  11. CEPHARANTHINE [Concomitant]
     Indication: PROPHYLAXIS
     Route: 048
  12. CIPROXAN [Concomitant]
     Indication: PROPHYLAXIS
     Route: 048
  13. ZOMETA [Concomitant]
     Indication: METASTASES TO BONE
     Route: 065
  14. AMOBAN [Concomitant]
     Route: 048
  15. LEUPLIN [Concomitant]
     Indication: BREAST CANCER RECURRENT
     Route: 065
     Dates: end: 20120404

REACTIONS (1)
  - Pneumonia [Recovering/Resolving]
